FAERS Safety Report 13616063 (Version 2)
Quarter: 2019Q1

REPORT INFORMATION
  Report Type: Spontaneous
  Country: US (occurrence: US)
  Receive Date: 20170606
  Receipt Date: 20190306
  Transmission Date: 20190417
  Serious: No
  Sender: FDA-Public Use
  Company Number: US-TEVA-735981ACC

PATIENT
  Sex: Female
  Weight: 90.71 kg

DRUGS (1)
  1. CYCLOBENZAPRINE. [Suspect]
     Active Substance: CYCLOBENZAPRINE
     Route: 065
     Dates: start: 20160126

REACTIONS (2)
  - Drug hypersensitivity [Unknown]
  - Pruritus [Unknown]
